FAERS Safety Report 6045239-7 (Version None)
Quarter: 2009Q1

REPORT INFORMATION
  Report Type: 
  Country: None (occurrence: None)
  Receive Date: 20090121
  Receipt Date: 20090113
  Transmission Date: 20090719
  Serious: Yes (Other)
  Sender: FDA-Public Use
  Company Number: CA-ASTRAZENECA-2009UW01174

PATIENT
  Age: 52 Year
  Sex: Male

DRUGS (2)
  1. OXEZE [Suspect]
     Dosage: 1 PUFF DAILY
     Route: 055
     Dates: start: 20050101
  2. OXEZE [Suspect]
     Dosage: 1 PUFF DAILY
     Route: 055

REACTIONS (4)
  - DRUG INEFFECTIVE [None]
  - DYSPNOEA [None]
  - FATIGUE [None]
  - LETHARGY [None]
